FAERS Safety Report 13370808 (Version 1)
Quarter: 2017Q1

REPORT INFORMATION
  Report Type: Spontaneous
  Country: JP (occurrence: JP)
  Receive Date: 20170324
  Receipt Date: 20170324
  Transmission Date: 20170429
  Serious: Yes (Death, Hospitalization)
  Sender: FDA-Public Use
  Company Number: JP-SA-2017SA047227

PATIENT
  Age: 75 Year
  Sex: Female

DRUGS (9)
  1. RIFAMPICIN [Suspect]
     Active Substance: RIFAMPIN
     Indication: DISSEMINATED TUBERCULOSIS
     Route: 065
  2. PREDNISOLONE. [Suspect]
     Active Substance: PREDNISOLONE
     Indication: DISSEMINATED TUBERCULOSIS
     Route: 065
  3. PREDNISOLONE. [Suspect]
     Active Substance: PREDNISOLONE
     Indication: DISSEMINATED TUBERCULOSIS
     Route: 065
  4. PYRAZINAMIDE. [Suspect]
     Active Substance: PYRAZINAMIDE
     Indication: DISSEMINATED TUBERCULOSIS
     Route: 065
  5. PREDNISOLONE. [Suspect]
     Active Substance: PREDNISOLONE
     Indication: DISSEMINATED TUBERCULOSIS
     Route: 065
  6. METHYLPREDNISOLONE. [Concomitant]
     Active Substance: METHYLPREDNISOLONE
  7. ETHAMBUTOL [Suspect]
     Active Substance: ETHAMBUTOL HYDROCHLORIDE
     Indication: DISSEMINATED TUBERCULOSIS
     Route: 065
  8. ISONIAZID. [Suspect]
     Active Substance: ISONIAZID
     Indication: DISSEMINATED TUBERCULOSIS
     Route: 065
  9. PREDNISOLONE. [Suspect]
     Active Substance: PREDNISOLONE
     Indication: DISSEMINATED TUBERCULOSIS
     Route: 065

REACTIONS (12)
  - Paradoxical drug reaction [Fatal]
  - Computerised tomogram thorax abnormal [Fatal]
  - Disseminated intravascular coagulation [Fatal]
  - Drug interaction [Unknown]
  - Disseminated tuberculosis [Fatal]
  - Liver injury [Recovering/Resolving]
  - Tuberculosis [Fatal]
  - Lung consolidation [Fatal]
  - Acute respiratory distress syndrome [Fatal]
  - Oxygen saturation decreased [Fatal]
  - Pleural effusion [Fatal]
  - Shock [Fatal]
